FAERS Safety Report 16631490 (Version 2)
Quarter: 2019Q3

REPORT INFORMATION
  Report Type: Spontaneous
  Country: US (occurrence: US)
  Receive Date: 20190725
  Receipt Date: 20190906
  Transmission Date: 20191004
  Serious: No
  Sender: FDA-Public Use
  Company Number: US-JNJFOC-20190734010

PATIENT
  Sex: Female
  Weight: 54.48 kg

DRUGS (2)
  1. BELBUCA [Concomitant]
     Active Substance: BUPRENORPHINE HYDROCHLORIDE
     Indication: PAIN
     Route: 065
  2. DURAGESIC [Suspect]
     Active Substance: FENTANYL
     Indication: PAIN
     Route: 062
     Dates: start: 2017, end: 2018

REACTIONS (4)
  - Application site reaction [Unknown]
  - Application site scar [Unknown]
  - Application site discolouration [Unknown]
  - Skin discolouration [Unknown]
